FAERS Safety Report 12970708 (Version 2)
Quarter: 2017Q2

REPORT INFORMATION
  Report Type: Spontaneous
  Country: ES (occurrence: ES)
  Receive Date: 20161123
  Receipt Date: 20170420
  Transmission Date: 20170830
  Serious: Yes (Hospitalization, Other)
  Sender: FDA-Public Use
  Company Number: ES-ALEXION PHARMACEUTICALS INC.-A201609171

PATIENT
  Age: 29 Year
  Sex: Male

DRUGS (4)
  1. SOLIRIS [Suspect]
     Active Substance: ECULIZUMAB
     Indication: HAEMOLYTIC URAEMIC SYNDROME
     Dosage: 900 MG, UNK
     Route: 042
  2. SOLIRIS [Suspect]
     Active Substance: ECULIZUMAB
     Dosage: 1200 MG, UNK
     Route: 042
  3. ERYTHROPOIETIN [Concomitant]
     Active Substance: ERYTHROPOIETIN
     Indication: ANAEMIA
     Route: 065
  4. IRON [Concomitant]
     Active Substance: IRON
     Indication: ANAEMIA
     Route: 065

REACTIONS (14)
  - Kidney fibrosis [Unknown]
  - Platelet count decreased [Unknown]
  - Complement factor C3 decreased [Unknown]
  - Renal tubular atrophy [Unknown]
  - Thrombotic microangiopathy [Unknown]
  - Staphylococcal bacteraemia [Recovered/Resolved]
  - Respiratory tract infection [Recovered/Resolved]
  - Therapeutic response decreased [Unknown]
  - Complement factor decreased [Unknown]
  - Hypertensive crisis [Recovered/Resolved]
  - Hypertension [Unknown]
  - Inappropriate schedule of drug administration [Unknown]
  - Haemolysis [Unknown]
  - Fungal skin infection [Unknown]
